FAERS Safety Report 21350088 (Version 1)
Quarter: 2022Q3

REPORT INFORMATION
  Report Type: Spontaneous
  Country: US (occurrence: US)
  Receive Date: 20220919
  Receipt Date: 20220919
  Transmission Date: 20221027
  Serious: No
  Sender: FDA-Public Use
  Company Number: US-SAREPTA THERAPEUTICS INC.-SRP2022-002412

PATIENT
  Age: 4 Year
  Sex: Male
  Weight: 15.88 kg

DRUGS (3)
  1. VYONDYS 53 [Suspect]
     Active Substance: GOLODIRSEN
     Indication: Duchenne muscular dystrophy
     Dosage: 500 MILLIGRAM, WEEKLY
     Route: 042
     Dates: start: 20220622, end: 20220715
  2. VYONDYS 53 [Suspect]
     Active Substance: GOLODIRSEN
     Dosage: 500 MILLIGRAM, WEEKLY
     Route: 042
     Dates: start: 20220803
  3. SODIUM CHLORIDE [Concomitant]
     Active Substance: SODIUM CHLORIDE
     Indication: Product used for unknown indication
     Dosage: 0.9% 10ML POSIFLSH 10 ML, AS NEEDED
     Route: 042
     Dates: start: 20220622

REACTIONS (2)
  - Poor venous access [Unknown]
  - Product dose omission issue [Unknown]

NARRATIVE: CASE EVENT DATE: 20220729
